FAERS Safety Report 10922343 (Version 2)
Quarter: 2015Q1

REPORT INFORMATION
  Report Type: Spontaneous
  Country: FR (occurrence: FR)
  Receive Date: 20150317
  Receipt Date: 20150329
  Transmission Date: 20150721
  Serious: Yes (Other)
  Sender: FDA-Public Use
  Company Number: PHHY2015FR030502

PATIENT
  Sex: Female

DRUGS (1)
  1. GILENYA [Suspect]
     Active Substance: FINGOLIMOD HYDROCHLORIDE
     Indication: PRODUCT USED FOR UNKNOWN INDICATION
     Route: 065
     Dates: start: 2014

REACTIONS (6)
  - Hepatic enzyme increased [Recovering/Resolving]
  - Acarodermatitis [Unknown]
  - Asthenia [Recovering/Resolving]
  - Influenza [Recovered/Resolved]
  - Rash [Unknown]
  - Lymphocyte count decreased [Unknown]
